FAERS Safety Report 14315281 (Version 1)
Quarter: 2017Q4

REPORT INFORMATION
  Report Type: Spontaneous
  Country: LB (occurrence: LB)
  Receive Date: 20171221
  Receipt Date: 20171221
  Transmission Date: 20180321
  Serious: Yes (Other)
  Sender: FDA-Public Use
  Company Number: LB-ELI_LILLY_AND_COMPANY-LB201712009677

PATIENT
  Age: 74 Year
  Sex: Male

DRUGS (3)
  1. CARBOPLATIN. [Suspect]
     Active Substance: CARBOPLATIN
     Indication: NON-SMALL CELL LUNG CANCER STAGE IIIA
     Dosage: UNK, UNKNOWN
     Route: 065
     Dates: start: 201704
  2. PEMETREXED. [Suspect]
     Active Substance: PEMETREXED
     Indication: NON-SMALL CELL LUNG CANCER STAGE IIIA
     Dosage: UNK, UNKNOWN
     Route: 065
     Dates: start: 201704
  3. KEYTRUDA [Suspect]
     Active Substance: PEMBROLIZUMAB
     Indication: NON-SMALL CELL LUNG CANCER STAGE IIIA
     Dosage: UNK, UNKNOWN
     Route: 065
     Dates: start: 201704

REACTIONS (2)
  - Pulmonary sarcoidosis [Unknown]
  - Off label use [Unknown]
